FAERS Safety Report 4339255-0 (Version None)
Quarter: 2004Q2

REPORT INFORMATION
  Report Type: 
  Country: None (occurrence: None)
  Receive Date: 20040412
  Receipt Date: 20040330
  Transmission Date: 20050107
  Serious: Yes (Other)
  Sender: FDA-Public Use
  Company Number: US-JNJFOC-20040104577

PATIENT
  Age: 63 Year
  Sex: Female
  Weight: 64.4108 kg

DRUGS (14)
  1. REMICADE [Suspect]
     Indication: PSORIATIC ARTHROPATHY
     Dosage: 400 MG, 1 IN 1 DAY, INTRAVENOUS
     Route: 042
     Dates: start: 20010201, end: 20031006
  2. REMICADE [Suspect]
     Indication: RHEUMATOID ARTHRITIS
     Dosage: 400 MG, 1 IN 1 DAY, INTRAVENOUS
     Route: 042
     Dates: start: 20010201, end: 20031006
  3. METHOTREXATE SODIUM [Suspect]
     Indication: PSORIATIC ARTHROPATHY
     Dosage: 7.5 MG, 1 IN 1 WEEK
     Dates: start: 20010801, end: 20031101
  4. AREDIA [Concomitant]
  5. FOLIC ACID [Concomitant]
  6. BEXTRA [Concomitant]
  7. ZYRTEC [Concomitant]
  8. ACETYLSALICYLIC ACID SRT [Concomitant]
  9. LORTAB [Concomitant]
  10. NEXIUM [Concomitant]
  11. SPIRONOLACTONE [Concomitant]
  12. SKELAXIN [Concomitant]
  13. HYDROCODONE (HYDROCODONE) [Concomitant]
  14. TYLENOL W/ CODEINE NO. 3 [Concomitant]

REACTIONS (2)
  - B-CELL SMALL LYMPHOCYTIC LYMPHOMA STAGE IV [None]
  - CHRONIC LYMPHOCYTIC LEUKAEMIA [None]
